FAERS Safety Report 6240017-8 (Version None)
Quarter: 2009Q2

REPORT INFORMATION
  Report Type: 
  Country: None (occurrence: None)
  Receive Date: 20090623
  Receipt Date: 20090615
  Transmission Date: 20091009
  Serious: Yes (Hospitalization, Disabling, Other)
  Sender: FDA-Public Use
  Company Number: PHRM2004FR03351

PATIENT
  Sex: Male

DRUGS (2)
  1. GLEEVEC [Suspect]
     Indication: CHRONIC MYELOID LEUKAEMIA
     Dosage: 600 MG/DAY
     Route: 048
     Dates: start: 20030207, end: 20041115
  2. GLEEVEC [Suspect]
     Dosage: 400 MG PER DAY
     Route: 048
     Dates: start: 20050101

REACTIONS (7)
  - MACULAR OEDEMA [None]
  - MACULOPATHY [None]
  - PERIORBITAL OEDEMA [None]
  - RETINAL DISORDER [None]
  - RETINAL HAEMORRHAGE [None]
  - RETINAL OPERATION [None]
  - VISUAL IMPAIRMENT [None]
